FAERS Safety Report 7864536-3 (Version None)
Quarter: 2011Q4

REPORT INFORMATION
  Report Type: 
  Country: None (occurrence: None)
  Receive Date: 20111028
  Receipt Date: 20111024
  Transmission Date: 20120403
  Serious: No
  Sender: FDA-Public Use
  Company Number: US-PFIZER INC-2011258402

PATIENT
  Sex: Female
  Weight: 61.224 kg

DRUGS (9)
  1. GABAPENTIN [Concomitant]
     Dosage: 1200 MG, 1X/DAY
  2. CALCIUM WITH VITAMIN D [Concomitant]
     Dosage: 1200 MG, 1X/DAY
  3. SYNTHROID [Concomitant]
     Dosage: 0.1 UG
  4. PHENYTOIN SODIUM [Suspect]
     Indication: GRAND MAL CONVULSION
     Dosage: 100 MG, 3X/DAY
     Route: 048
     Dates: start: 20110901, end: 20110901
  5. LISINOPRIL [Concomitant]
     Dosage: 20 MG
  6. CENTRUM [Concomitant]
     Dosage: UNK
  7. DILANTIN [Suspect]
     Indication: GRAND MAL CONVULSION
     Dosage: 100 MG, 3X/DAY
     Route: 048
     Dates: start: 19881101
  8. FOSAMAX [Concomitant]
     Dosage: 70 MG, WEEKLY
  9. ACETYLSALICYLIC ACID [Concomitant]
     Dosage: 81 MG, 1X/DAY

REACTIONS (3)
  - ANTICONVULSANT DRUG LEVEL BELOW THERAPEUTIC [None]
  - FEELING ABNORMAL [None]
  - MALAISE [None]
